FAERS Safety Report 9493826 (Version 2)
Quarter: 2013Q3

REPORT INFORMATION
  Report Type: Spontaneous
  Country: BR (occurrence: BR)
  Receive Date: 20130902
  Receipt Date: 20130902
  Transmission Date: 20140515
  Serious: Yes (Other)
  Sender: FDA-Public Use
  Company Number: PHHY2013BR041455

PATIENT
  Sex: Male

DRUGS (2)
  1. RITALIN LA [Suspect]
     Indication: PSYCHOMOTOR HYPERACTIVITY
     Dosage: 1 DF, DAILY
     Route: 048
  2. TEGRETOL [Suspect]
     Indication: SLEEP DISORDER
     Dosage: UNK UKN, UNK

REACTIONS (6)
  - Choking [Recovered/Resolved]
  - Dysphagia [Recovered/Resolved]
  - Vomiting [Recovered/Resolved]
  - Psychomotor hyperactivity [Not Recovered/Not Resolved]
  - Therapeutic response decreased [Unknown]
  - Wrong technique in drug usage process [Unknown]
